FAERS Safety Report 6479838-5 (Version None)
Quarter: 2009Q4

REPORT INFORMATION
  Report Type: 
  Country: None (occurrence: None)
  Receive Date: 20091208
  Receipt Date: 20091130
  Transmission Date: 20100525
  Serious: Yes (Other)
  Sender: FDA-Public Use
  Company Number: US-ROCHE-667450

PATIENT
  Sex: Female

DRUGS (3)
  1. XELODA [Suspect]
     Route: 048
     Dates: start: 20080601, end: 20081101
  2. XELODA [Suspect]
     Dosage: 2 TABLETS IN THE MORNING AND 1 TABLET IN THE EVENING.
     Route: 048
     Dates: start: 20081101, end: 20090923
  3. RESTASIS [Suspect]
     Indication: DRY EYE
     Route: 047

REACTIONS (7)
  - EYE IRRITATION [None]
  - FATIGUE [None]
  - LACRIMATION INCREASED [None]
  - NASOPHARYNGITIS [None]
  - PALMAR-PLANTAR ERYTHRODYSAESTHESIA SYNDROME [None]
  - RHINORRHOEA [None]
  - TUMOUR MARKER INCREASED [None]
